FAERS Safety Report 9803246 (Version 4)
Quarter: 2014Q1

REPORT INFORMATION
  Report Type: Spontaneous
  Country: US (occurrence: US)
  Receive Date: 20140108
  Receipt Date: 20140317
  Transmission Date: 20141002
  Serious: Yes (Disabling)
  Sender: FDA-Public Use
  Company Number: US-009507513-1103USA03605

PATIENT
  Sex: Male

DRUGS (3)
  1. PROPECIA [Suspect]
     Indication: ALOPECIA
     Dosage: 1 MG, QD
     Route: 048
     Dates: start: 20070614, end: 20071019
  2. FINASTERIDE [Suspect]
     Indication: ALOPECIA
     Dosage: 5 MG, QD
     Route: 048
     Dates: start: 20081027, end: 20100702
  3. HEMP [Concomitant]

REACTIONS (10)
  - Emotional distress [Unknown]
  - Anxiety [Unknown]
  - Libido decreased [Unknown]
  - Stress [Unknown]
  - Fatigue [Unknown]
  - Wrong technique in drug usage process [Unknown]
  - Alopecia [Unknown]
  - Intentional drug misuse [Unknown]
  - Therapeutic response decreased [Unknown]
  - Depression [Not Recovered/Not Resolved]
